FAERS Safety Report 6174295-0 (Version None)
Quarter: 2009Q2

REPORT INFORMATION
  Report Type: 
  Country: None (occurrence: None)
  Receive Date: 20090430
  Receipt Date: 20080505
  Transmission Date: 20091009
  Serious: No
  Sender: FDA-Public Use
  Company Number: US-ASTRAZENECA-2008UW09237

PATIENT
  Age: 64 Year
  Sex: Female
  Weight: 70.3 kg

DRUGS (2)
  1. NEXIUM [Suspect]
     Indication: REFLUX LARYNGITIS
     Route: 048
  2. NEXIUM [Suspect]
     Indication: OROPHARYNGEAL PAIN
     Route: 048

REACTIONS (4)
  - AGITATION [None]
  - CONSTIPATION [None]
  - RESTLESSNESS [None]
  - THERAPEUTIC RESPONSE UNEXPECTED [None]
